FAERS Safety Report 5256464-7 (Version None)
Quarter: 2007Q1

REPORT INFORMATION
  Report Type: 
  Country: None (occurrence: None)
  Receive Date: 20070306
  Receipt Date: 20070302
  Transmission Date: 20070707
  Serious: Yes (Disabling, Other)
  Sender: FDA-Public Use
  Company Number: US-GLAXOSMITHKLINE-A0640268A

PATIENT
  Age: 41 Year
  Sex: Female
  Weight: 64.5 kg

DRUGS (4)
  1. AVANDIA [Suspect]
     Dosage: 2MG TWICE PER DAY
     Route: 048
     Dates: start: 20050202, end: 20070101
  2. METFORMIN HCL [Concomitant]
     Dosage: 850MG TWICE PER DAY
     Route: 048
     Dates: start: 20051201
  3. AMARYL [Concomitant]
     Dosage: 2MG TWICE PER DAY
     Dates: start: 20060201
  4. LISINOPRIL [Concomitant]
     Indication: HYPERTENSION
     Route: 048

REACTIONS (2)
  - MACULAR OEDEMA [None]
  - RETINOPATHY [None]
